FAERS Safety Report 4413448-6 (Version None)
Quarter: 2004Q2

REPORT INFORMATION
  Report Type: 
  Country: None (occurrence: None)
  Receive Date: 20040630
  Receipt Date: 20040322
  Transmission Date: 20050107
  Serious: No
  Sender: FDA-Public Use
  Company Number: 04P-163-0254264-00

PATIENT
  Age: 40 Year
  Sex: Male
  Weight: 64.4108 kg

DRUGS (4)
  1. HUMIRA [Suspect]
     Indication: RHEUMATOID ARTHRITIS
     Dosage: 40 MG, 1 IN 2 WK
     Dates: start: 20030601
  2. METHOTREXATE [Concomitant]
  3. ROFECOXIB [Concomitant]
  4. PREDNISONE TAB [Concomitant]

REACTIONS (2)
  - INJECTION SITE BURNING [None]
  - INJECTION SITE SWELLING [None]
